FAERS Safety Report 10278421 (Version 2)
Quarter: 2014Q3

REPORT INFORMATION
  Report Type: Report from Study
  Country: BR (occurrence: BR)
  Receive Date: 20140704
  Receipt Date: 20140730
  Transmission Date: 20150326
  Serious: Yes (Hospitalization, Other)
  Sender: FDA-Public Use
  Company Number: BR-ELI_LILLY_AND_COMPANY-BR201406008042

PATIENT
  Sex: Female

DRUGS (3)
  1. HUMAN INSULIN [Suspect]
     Active Substance: INSULIN HUMAN
     Indication: TYPE 1 DIABETES MELLITUS
     Dosage: 50 IU, EACH MORNING
     Route: 058
     Dates: start: 2004
  2. HUMAN INSULIN [Suspect]
     Active Substance: INSULIN HUMAN
     Dosage: 10 IU, EACH EVENING
     Route: 058
     Dates: start: 2004
  3. HUMAN INSULIN (RDNA ORIGIN) REGULAR [Suspect]
     Active Substance: INSULIN HUMAN
     Indication: TYPE 1 DIABETES MELLITUS
     Dosage: UNK, UNKNOWN
     Route: 058
     Dates: start: 2004

REACTIONS (8)
  - Diabetes mellitus inadequate control [Unknown]
  - Hypertension [Unknown]
  - Exposure during pregnancy [Recovered/Resolved]
  - Abortion [Recovered/Resolved]
  - Blood glucose increased [Recovered/Resolved]
  - Feeding disorder [Recovered/Resolved]
  - Hypoglycaemic seizure [Recovered/Resolved]
  - Respiratory disorder [Recovered/Resolved]

NARRATIVE: CASE EVENT DATE: 2011
